FAERS Safety Report 18444692 (Version 3)
Quarter: 2021Q1

REPORT INFORMATION
  Report Type: Report from Study
  Country: None (occurrence: US)
  Receive Date: 20201030
  Receipt Date: 20210122
  Transmission Date: 20210419
  Serious: Yes (Other)
  Sender: FDA-Public Use
  Company Number: US-ABBVIE-20K-163-3447091-00

PATIENT
  Sex: Female

DRUGS (3)
  1. RINVOQ [Suspect]
     Active Substance: UPADACITINIB
     Route: 048
  2. RINVOQ [Suspect]
     Active Substance: UPADACITINIB
     Indication: RHEUMATOID ARTHRITIS
     Route: 048
  3. RINVOQ [Suspect]
     Active Substance: UPADACITINIB
     Route: 048

REACTIONS (15)
  - Fatigue [Unknown]
  - Arthralgia [Unknown]
  - Hypertension [Unknown]
  - Coronary artery occlusion [Unknown]
  - Back pain [Unknown]
  - Peripheral swelling [Unknown]
  - Paraesthesia [Unknown]
  - Neuropathy peripheral [Unknown]
  - Headache [Unknown]
  - Joint swelling [Unknown]
  - Ligament sprain [Unknown]
  - Gait disturbance [Unknown]
  - Pain in extremity [Recovering/Resolving]
  - Temperature intolerance [Unknown]
  - Hypoaesthesia [Recovering/Resolving]
